FAERS Safety Report 24929002 (Version 1)
Quarter: 2025Q1

REPORT INFORMATION
  Report Type: Spontaneous
  Country: US (occurrence: None)
  Receive Date: 20250205
  Receipt Date: 20250205
  Transmission Date: 20250408
  Serious: Yes (Hospitalization)
  Sender: FDA-CTU
  Company Number: None

PATIENT
  Sex: Female

DRUGS (1)
  1. ENBREL [Suspect]
     Active Substance: ETANERCEPT
     Indication: Psoriasis
     Dosage: FREQUENCY : TWICE A WEEK;?
     Route: 058
     Dates: start: 202411

REACTIONS (6)
  - Nasopharyngitis [None]
  - Dyspnoea [None]
  - Nasopharyngitis [None]
  - Nausea [None]
  - Rhinorrhoea [None]
  - Hypersensitivity [None]
